FAERS Safety Report 4732853-1 (Version None)
Quarter: 2005Q3

REPORT INFORMATION
  Report Type: 
  Country: None (occurrence: None)
  Receive Date: 20050803
  Receipt Date: 20050218
  Transmission Date: 20060218
  Serious: No
  Sender: FDA-Public Use
  Company Number: US-GLAXOSMITHKLINE-A0546345A

PATIENT
  Age: 56 Year
  Sex: Female
  Weight: 93.2 kg

DRUGS (2)
  1. AVANDAMET [Suspect]
     Indication: DRUG USE FOR UNKNOWN INDICATION
     Route: 048
     Dates: start: 20030401, end: 20040128
  2. LEXAPRO [Concomitant]
     Route: 048

REACTIONS (6)
  - AFFECT LABILITY [None]
  - APATHY [None]
  - CONFUSIONAL STATE [None]
  - DISTURBANCE IN ATTENTION [None]
  - FOOD CRAVING [None]
  - LETHARGY [None]
